FAERS Safety Report 7670116-5 (Version None)
Quarter: 2011Q3

REPORT INFORMATION
  Report Type: 
  Country: None (occurrence: None)
  Receive Date: 20110808
  Receipt Date: 20110801
  Transmission Date: 20111222
  Serious: Yes (Hospitalization)
  Sender: FDA-Public Use
  Company Number: PHHO2011NL02163

PATIENT
  Sex: Female
  Weight: 17.8 kg

DRUGS (11)
  1. ILARIS [Suspect]
     Dosage: UNK
     Route: 058
     Dates: start: 20100309
  2. METHOTREXATE [Concomitant]
     Indication: JUVENILE ARTHRITIS
     Dosage: UNK
     Dates: start: 20081201
  3. FOLIC ACID [Concomitant]
     Dosage: UNK
     Dates: start: 20081201
  4. ILARIS [Suspect]
     Indication: JUVENILE ARTHRITIS
     Dosage: CODE NOT BROKEN
     Route: 058
     Dates: start: 20100406
  5. BLINDED NO TREATMENT RECEIVED [Suspect]
     Indication: JUVENILE ARTHRITIS
     Dosage: CODE NOT BROKEN
     Route: 058
     Dates: start: 20100406
  6. BLINDED PLACEBO [Suspect]
     Indication: JUVENILE ARTHRITIS
     Dosage: CODE NOT BROKEN
     Route: 058
     Dates: start: 20100406
  7. BLINDED PLACEBO [Suspect]
     Dosage: CODE NOT BROKEN
     Route: 058
     Dates: start: 20110113
  8. ILARIS [Suspect]
     Indication: JUVENILE ARTHRITIS
     Dosage: 70MG
     Route: 058
     Dates: start: 20100209
  9. BLINDED NO TREATMENT RECEIVED [Suspect]
     Dosage: CODE NOT BROKEN
     Route: 058
     Dates: start: 20110113
  10. INDOMETHACIN [Concomitant]
     Indication: JUVENILE ARTHRITIS
     Dosage: UNK
     Dates: start: 20081201
  11. ILARIS [Suspect]
     Dosage: CODE NOT BROKEN
     Route: 058
     Dates: start: 20110113

REACTIONS (2)
  - LOWER RESPIRATORY TRACT INFECTION [None]
  - DRUG INEFFECTIVE [None]
